FAERS Safety Report 9153688 (Version 2)
Quarter: 2013Q2

REPORT INFORMATION
  Report Type: Report from Study
  Country: US (occurrence: US)
  Receive Date: 20130311
  Receipt Date: 20130506
  Transmission Date: 20140414
  Serious: Yes (Death, Other)
  Sender: FDA-Public Use
  Company Number: PHEH2013US005617

PATIENT
  Age: 78 Year
  Sex: Female
  Weight: 62 kg

DRUGS (24)
  1. AFINITOR [Suspect]
     Indication: RENAL CANCER
     Dosage: 5 MG, QD
     Route: 048
     Dates: start: 20121121, end: 20130128
  2. PHENERGAN                          /00404701/ [Concomitant]
     Dosage: 25 MG, PRN
     Route: 048
  3. MEGACE [Concomitant]
     Indication: CACHEXIA
     Dosage: 400 MG, BID
     Route: 048
  4. XOPENEX [Concomitant]
  5. DIGOXIN [Concomitant]
     Dosage: 0.125 MG, DAILY
     Route: 048
  6. LIPITOR [Concomitant]
     Dosage: 5 MG
     Route: 048
  7. DILTIAZEM [Concomitant]
     Dosage: 240 MG, DAILY
     Route: 048
  8. TYLENOL [Concomitant]
     Indication: PYREXIA
     Dosage: 650 MG, PRNCEVERY 4 HOURS
  9. NORCO [Concomitant]
     Indication: PAIN
     Dosage: 1 DF, PRN EVERY 4 HOURS
  10. LEXAPRO [Concomitant]
     Dosage: 110 MG
     Route: 048
  11. ATIVAN [Concomitant]
     Indication: ANXIETY
     Dosage: 0.5 MG, TID
     Route: 048
  12. AMBIEN [Concomitant]
     Indication: INSOMNIA
     Dosage: 10 MG, PRN
     Route: 048
  13. TESSALON [Concomitant]
     Indication: COUGH
     Dosage: 100 MG, TID
     Route: 048
  14. TUSSIONEX [Concomitant]
     Indication: COUGH
     Dosage: 5 ML, Q12H
     Route: 048
  15. MAALOX                                  /NET/ [Concomitant]
     Indication: DYSPEPSIA
     Dosage: 30 ML, PRN
     Route: 048
  16. PROBIOTIC                          /07343501/ [Concomitant]
     Dosage: 1 DF, TID
     Route: 048
  17. IMODIUM [Concomitant]
     Indication: DIARRHOEA
     Dosage: 2 ML, TID
     Route: 048
  18. MILK OF MAGNESIA [Concomitant]
     Indication: CONSTIPATION
     Dosage: 30 MG, PRN
     Route: 048
  19. ZOFRAN [Concomitant]
     Indication: NAUSEA
     Dosage: 80 MG, PRN EVERY 6 HOURS
     Route: 042
  20. PEPCID [Concomitant]
     Dosage: 20 MG, UNK
     Route: 048
  21. PREDNISONE [Concomitant]
     Dosage: 20 MG, DAILY
     Route: 048
  22. HUMULIN R [Concomitant]
     Route: 058
  23. SYNTHROID [Concomitant]
     Dosage: 0.5 MG
     Route: 048
  24. MIRACLE MINERAL SOLUTION [Concomitant]
     Dosage: 5 MG

REACTIONS (15)
  - Death [Fatal]
  - Hypercalcaemia of malignancy [Unknown]
  - Atrial fibrillation [Recovering/Resolving]
  - Heart rate increased [Unknown]
  - Coagulopathy [Unknown]
  - International normalised ratio increased [Recovering/Resolving]
  - Renal cell carcinoma [Unknown]
  - Malignant neoplasm progression [Unknown]
  - Metastases to lung [Unknown]
  - Somnolence [Unknown]
  - Malnutrition [Unknown]
  - Cachexia [Unknown]
  - Cough [Unknown]
  - Fatigue [Not Recovered/Not Resolved]
  - Dyspnoea [Unknown]
